FAERS Safety Report 5863013-9 (Version None)
Quarter: 2008Q3

REPORT INFORMATION
  Report Type: 
  Country: None (occurrence: None)
  Receive Date: 20080828
  Receipt Date: 20080822
  Transmission Date: 20090109
  Serious: Yes (Hospitalization, Other)
  Sender: FDA-Public Use
  Company Number: SI-JNJFOC-20080805065

PATIENT
  Age: 41 Year
  Sex: Female

DRUGS (12)
  1. REMICADE [Suspect]
     Route: 042
  2. REMICADE [Suspect]
     Indication: COLITIS ULCERATIVE
     Route: 042
  3. METHYLPREDNISOLONE 16MG TAB [Concomitant]
  4. METRONIDAZOLE [Concomitant]
  5. HEPARIN [Concomitant]
     Route: 058
  6. AZATHIOPRINE [Concomitant]
  7. CALCITRIOL [Concomitant]
  8. CALCIUM CARBONATE [Concomitant]
  9. LANSOPRAZOLE [Concomitant]
  10. DEXTRIFERRON [Concomitant]
  11. KETOPROFEN [Concomitant]
  12. CIPROFLOXACIN [Concomitant]

REACTIONS (1)
  - DISSEMINATED TUBERCULOSIS [None]
